FAERS Safety Report 7854261-7 (Version None)
Quarter: 2011Q4

REPORT INFORMATION
  Report Type: 
  Country: None (occurrence: None)
  Receive Date: 20111026
  Receipt Date: 20111017
  Transmission Date: 20120403
  Serious: Yes (Hospitalization)
  Sender: FDA-Public Use
  Company Number: US-ASTRAZENECA-2011SE12989

PATIENT
  Age: 58 Year
  Sex: Female

DRUGS (7)
  1. SYMBICORT [Suspect]
     Indication: CHRONIC OBSTRUCTIVE PULMONARY DISEASE
     Route: 055
     Dates: start: 20090101
  2. SYMBICORT [Suspect]
     Indication: EMPHYSEMA
     Route: 055
     Dates: start: 20090101
  3. NEXIUM [Suspect]
     Indication: GASTROOESOPHAGEAL REFLUX DISEASE
     Route: 048
     Dates: start: 20070101
  4. PRAVASTATIN [Concomitant]
  5. DIAZEPAM [Concomitant]
  6. TRILIPIX [Concomitant]
  7. ACCOLATE [Suspect]
     Indication: ASTHMA
     Route: 048
     Dates: start: 19980101

REACTIONS (9)
  - EMPHYSEMA [None]
  - DYSPNOEA [None]
  - MALAISE [None]
  - CHRONIC OBSTRUCTIVE PULMONARY DISEASE [None]
  - NERVE COMPRESSION [None]
  - DIVERTICULITIS [None]
  - SPONDYLITIS [None]
  - ARTHRITIS [None]
  - WEIGHT DECREASED [None]
